FAERS Safety Report 7251484-5 (Version None)
Quarter: 2011Q1

REPORT INFORMATION
  Report Type: 
  Country: None (occurrence: None)
  Receive Date: 20110128
  Receipt Date: 20110120
  Transmission Date: 20110831
  Serious: Yes (Other)
  Sender: FDA-Public Use
  Company Number: PHHY2011US04894

PATIENT
  Sex: Male
  Weight: 47 kg

DRUGS (1)
  1. EXJADE [Suspect]
     Indication: THALASSAEMIA BETA
     Dosage: TWO 500 MG TABLETS
     Route: 048

REACTIONS (1)
  - HAEMOGLOBIN DECREASED [None]
